FAERS Safety Report 7291453-2 (Version None)
Quarter: 2011Q1

REPORT INFORMATION
  Report Type: 
  Country: None (occurrence: None)
  Receive Date: 20110202
  Receipt Date: 20110124
  Transmission Date: 20110831
  Serious: Yes (Other)
  Sender: FDA-Public Use
  Company Number: 2011MA000636

PATIENT
  Sex: Male

DRUGS (3)
  1. ETANERCEPT [Concomitant]
  2. PREV MEDS [Concomitant]
  3. SPIRONOLACTONE [Suspect]
     Indication: PRODUCT USED FOR UNKNOWN INDICATION

REACTIONS (2)
  - GYNAECOMASTIA [None]
  - ANGINA PECTORIS [None]
